FAERS Safety Report 7959426-1 (Version None)
Quarter: 2011Q4

REPORT INFORMATION
  Report Type: 
  Country: None (occurrence: None)
  Receive Date: 20111206
  Receipt Date: 20111129
  Transmission Date: 20120403
  Serious: Yes (Other)
  Sender: FDA-Public Use
  Company Number: US-PFIZER INC-2011292238

PATIENT
  Sex: Male
  Weight: 145.12 kg

DRUGS (5)
  1. CELEBREX [Interacting]
     Indication: ARTHRITIS
     Dosage: 200 MG, 2X/DAY
  2. OMEPRAZOLE [Interacting]
     Indication: EPIGASTRIC DISCOMFORT
     Dosage: 20 MG, 2X/DAY
     Dates: start: 20111001
  3. COZAAR [Concomitant]
     Indication: HYPERTENSION
     Dosage: UNK
  4. MULTI-VITAMINS [Suspect]
     Indication: ANAEMIA
     Dosage: UNK,DAILY
     Dates: start: 20111101, end: 20111101
  5. ALDACTAZIDE [Concomitant]
     Indication: HYPERTENSION
     Dosage: UNK

REACTIONS (5)
  - CONSTIPATION [None]
  - ARTHRALGIA [None]
  - ANAEMIA [None]
  - EPIGASTRIC DISCOMFORT [None]
  - DRUG INTERACTION [None]
